FAERS Safety Report 11553547 (Version 1)
Quarter: 2015Q3

REPORT INFORMATION
  Report Type: Spontaneous
  Country: FR (occurrence: FR)
  Receive Date: 20150925
  Receipt Date: 20150925
  Transmission Date: 20151125
  Serious: Yes (Hospitalization)
  Sender: FDA-Public Use
  Company Number: FR-PFIZER INC-2015309626

PATIENT
  Age: 88 Year
  Sex: Female

DRUGS (8)
  1. RANITIDINE [Suspect]
     Active Substance: RANITIDINE\RANITIDINE HYDROCHLORIDE
     Route: 048
  2. FLECAINE [Suspect]
     Active Substance: FLECAINIDE
     Route: 048
  3. DIFFU-K [Concomitant]
     Active Substance: POTASSIUM CHLORIDE
  4. ACTONEL [Suspect]
     Active Substance: RISEDRONATE SODIUM
     Route: 048
  5. CALCIDIA [Concomitant]
     Active Substance: CALCIUM POLYCARBOPHIL
  6. AMLOR [Suspect]
     Active Substance: AMLODIPINE BESYLATE
     Route: 048
  7. HYDROCORTISONE. [Suspect]
     Active Substance: HYDROCORTISONE
     Route: 048
  8. UVEDOSE [Concomitant]
     Active Substance: CHOLECALCIFEROL

REACTIONS (1)
  - Hyponatraemia [Unknown]

NARRATIVE: CASE EVENT DATE: 20150821
